FAERS Safety Report 17362966 (Version 1)
Quarter: 2020Q1

REPORT INFORMATION
  Report Type: Spontaneous
  Country: FR (occurrence: FR)
  Receive Date: 20200203
  Receipt Date: 20200203
  Transmission Date: 20200409
  Serious: Yes (Other)
  Sender: FDA-Public Use
  Company Number: FR-FERRINGPH-2020FE00501

PATIENT
  Age: 63 Year
  Sex: Male

DRUGS (2)
  1. FIRMAGON [Suspect]
     Active Substance: DEGARELIX ACETATE
     Indication: PRODUCT USED FOR UNKNOWN INDICATION
     Dosage: 80 MG, ADMINISTERED TWICE WITHIN AN UNSPECIFIED TIME FRAME
     Route: 065
     Dates: start: 201910, end: 201910
  2. FIRMAGON [Suspect]
     Active Substance: DEGARELIX ACETATE
     Dosage: 2X 120 MG, ONCE
     Route: 065
     Dates: start: 201910, end: 201910

REACTIONS (1)
  - Phlebitis [Unknown]
